FAERS Safety Report 12676295 (Version 1)
Quarter: 2016Q3

REPORT INFORMATION
  Report Type: Spontaneous
  Country: US (occurrence: US)
  Receive Date: 20160823
  Receipt Date: 20160823
  Transmission Date: 20161109
  Serious: No
  Sender: FDA-Public Use
  Company Number: US-PFIZER INC-2016393002

PATIENT
  Sex: Female

DRUGS (1)
  1. CHANTIX [Suspect]
     Active Substance: VARENICLINE TARTRATE
     Dosage: 1.5 MG, DAILY (1 MG IN THE MORNING AND 0.5 IN THE EVENING)

REACTIONS (3)
  - Flatulence [Unknown]
  - Fatigue [Unknown]
  - Abdominal distension [Unknown]
